FAERS Safety Report 9535088 (Version 1)
Quarter: 2013Q3

REPORT INFORMATION
  Report Type: Spontaneous
  Country: US (occurrence: US)
  Receive Date: 20130918
  Receipt Date: 20130918
  Transmission Date: 20140515
  Serious: Yes (Other)
  Sender: FDA-Public Use
  Company Number: US-PURDUE-USA-2012-0091784

PATIENT
  Age: 35 Year
  Sex: Female

DRUGS (1)
  1. INTERMEZZO [Suspect]
     Indication: PRODUCT USED FOR UNKNOWN INDICATION
     Dosage: 1.75 MG, SEE TEXT
     Route: 060
     Dates: start: 20120811

REACTIONS (3)
  - Swelling face [Unknown]
  - Eyelid irritation [Unknown]
  - Rash [Unknown]
